FAERS Safety Report 7592791-6 (Version None)
Quarter: 2011Q3

REPORT INFORMATION
  Report Type: 
  Country: None (occurrence: None)
  Receive Date: 20110706
  Receipt Date: 20110630
  Transmission Date: 20111222
  Serious: Yes (Other)
  Sender: FDA-Public Use
  Company Number: US-PFIZER INC-2010006410

PATIENT
  Sex: Male

DRUGS (2)
  1. CHANTIX [Suspect]
     Indication: TOBACCO ABUSE
     Dosage: STARTING MONTH PACK 0.5MGX11, 1MGX42
     Dates: start: 20080211, end: 20080311
  2. CHANTIX [Suspect]
     Dosage: CONTINUING MONTH PACK 1MG
     Dates: start: 20080311, end: 20080326

REACTIONS (7)
  - ABNORMAL BEHAVIOUR [None]
  - AMNESIA [None]
  - AGGRESSION [None]
  - ANXIETY [None]
  - PARANOIA [None]
  - SUICIDE ATTEMPT [None]
  - DEPRESSION [None]
